FAERS Safety Report 17076227 (Version 1)
Quarter: 2019Q4

REPORT INFORMATION
  Report Type: Spontaneous
  Country: FR (occurrence: FR)
  Receive Date: 20191126
  Receipt Date: 20191126
  Transmission Date: 20200122
  Serious: Yes (Other)
  Sender: FDA-Public Use
  Company Number: FR-MYLANLABS-2019M1113909

PATIENT
  Age: 4 Year
  Sex: Male
  Weight: 19 kg

DRUGS (1)
  1. METHOTREXATE MYLAN [Suspect]
     Active Substance: METHOTREXATE SODIUM
     Indication: ACUTE MYELOID LEUKAEMIA
     Dosage: 11400 MILLIGRAM, CYCLE
     Dates: start: 20190409, end: 20190508

REACTIONS (3)
  - Disease recurrence [Recovering/Resolving]
  - Conjunctivitis [Recovered/Resolved]
  - Punctate keratitis [Recovering/Resolving]

NARRATIVE: CASE EVENT DATE: 20190412
